FAERS Safety Report 9671180 (Version 3)
Quarter: 2013Q4

REPORT INFORMATION
  Report Type: Spontaneous
  Country: AU (occurrence: AU)
  Receive Date: 20131106
  Receipt Date: 20131222
  Transmission Date: 20140711
  Serious: Yes (Hospitalization, Other)
  Sender: FDA-Public Use
  Company Number: AU-009507513-1310AUS011743

PATIENT
  Age: 53 Year
  Sex: Male
  Weight: 162 kg

DRUGS (6)
  1. VICTRELIS 200 MG [Suspect]
     Indication: HEPATITIS C
     Dosage: 800 MG, Q8H / IV Q8H
     Route: 048
     Dates: start: 20130301, end: 20131107
  2. RIBAVIRIN [Suspect]
     Indication: HEPATITIS C
     Dosage: 1400 MG, QD
     Route: 048
     Dates: start: 2013
  3. PEGATRON [Suspect]
     Indication: HEPATITIS C
     Dosage: 150 MICROGRAM, QW
     Dates: start: 2013
  4. ATENOLOL [Concomitant]
     Indication: ATRIAL FIBRILLATION
     Dosage: TOTAL DAILY DOSE: 25 MG
     Route: 048
     Dates: start: 20130218
  5. EXFORGE [Concomitant]
     Indication: ATRIAL FIBRILLATION
     Dosage: 1 T/DAY
     Route: 048
     Dates: start: 20130218
  6. EXFORGE [Concomitant]
     Indication: HYPERTENSION

REACTIONS (2)
  - Oedema [Recovered/Resolved]
  - Weight increased [Recovered/Resolved]
